FAERS Safety Report 9327039 (Version 1)
Quarter: 2013Q2

REPORT INFORMATION
  Report Type: Spontaneous
  Country: US (occurrence: US)
  Receive Date: 20130604
  Receipt Date: 20130604
  Transmission Date: 20140414
  Serious: No
  Sender: FDA-Public Use
  Company Number: US-AMGEN-USASP2013033448

PATIENT
  Age: 71 Year
  Sex: Female

DRUGS (2)
  1. ENBREL [Suspect]
     Indication: PSORIATIC ARTHROPATHY
     Dosage: 50 MG, ONCE WEEKLY
     Dates: start: 20130411
  2. METHOTREXATE [Concomitant]
     Dosage: 6 TABLETS ONCE WEEKLY 2.5MG

REACTIONS (2)
  - Mobility decreased [Not Recovered/Not Resolved]
  - Injection site pain [Recovered/Resolved]
